FAERS Safety Report 18508119 (Version 1)
Quarter: 2020Q4

REPORT INFORMATION
  Report Type: Spontaneous
  Country: IR (occurrence: IR)
  Receive Date: 20201116
  Receipt Date: 20201116
  Transmission Date: 20210114
  Serious: Yes (Other)
  Sender: FDA-Public Use
  Company Number: IR-PURDUE-USA-2020-0177195

PATIENT
  Age: 52 Year
  Sex: Male

DRUGS (11)
  1. FENTANYL. [Suspect]
     Active Substance: FENTANYL
     Indication: INDUCTION OF ANAESTHESIA
     Dosage: 200 MCG, UNK
     Route: 065
  2. THIOPENTAL NATRII [Suspect]
     Active Substance: THIOPENTAL SODIUM
     Indication: MUSCLE RELAXANT THERAPY
  3. ATRACURIUM [Suspect]
     Active Substance: ATRACURIUM
     Indication: INDUCTION OF ANAESTHESIA
     Dosage: 40 MG, UNK
     Route: 065
  4. NITROUS OXIDE W/OXYGEN [Suspect]
     Active Substance: NITROUS OXIDE\OXYGEN
     Indication: ANAESTHESIA
     Dosage: UNK
     Route: 055
  5. MIDAZOLAM. [Suspect]
     Active Substance: MIDAZOLAM
     Indication: MUSCLE RELAXANT THERAPY
  6. THIOPENTAL NATRII [Suspect]
     Active Substance: THIOPENTAL SODIUM
     Indication: INDUCTION OF ANAESTHESIA
     Dosage: 400 MG, UNK
     Route: 065
  7. NON-PMN MORPHINE SULFATE [Suspect]
     Active Substance: MORPHINE SULFATE
     Indication: ANAESTHESIA
     Dosage: 8 MG, UNK
     Route: 042
  8. ISOFLURANE. [Suspect]
     Active Substance: ISOFLURANE
     Indication: ANAESTHESIA
     Dosage: UNK
     Route: 055
  9. FENTANYL. [Suspect]
     Active Substance: FENTANYL
     Indication: MUSCLE RELAXANT THERAPY
  10. MIDAZOLAM. [Suspect]
     Active Substance: MIDAZOLAM
     Indication: INDUCTION OF ANAESTHESIA
     Dosage: 2 MG, UNK
     Route: 065
  11. ATRACURIUM [Suspect]
     Active Substance: ATRACURIUM
     Indication: MUSCLE RELAXANT THERAPY

REACTIONS (1)
  - Parotid gland enlargement [Recovered/Resolved]
